FAERS Safety Report 5963084-5 (Version None)
Quarter: 2008Q4

REPORT INFORMATION
  Report Type: 
  Country: None (occurrence: None)
  Receive Date: 20081119
  Receipt Date: 20081008
  Transmission Date: 20090506
  Serious: No
  Sender: FDA-Public Use
  Company Number: WAES 0810USA01810

PATIENT
  Sex: Female

DRUGS (3)
  1. JANUVIA [Suspect]
     Indication: DIABETES MELLITUS
     Dosage: 50 MG/PO : 25 MG/PO
     Route: 048
     Dates: start: 20080613, end: 20080711
  2. JANUVIA [Suspect]
     Indication: DIABETES MELLITUS
     Dosage: 50 MG/PO : 25 MG/PO
     Route: 048
     Dates: start: 20080711, end: 20080808
  3. ALDOMET-M [Concomitant]

REACTIONS (1)
  - HEADACHE [None]
